FAERS Safety Report 22167881 (Version 2)
Quarter: 2023Q2

REPORT INFORMATION
  Report Type: Report from Study
  Country: KR (occurrence: KR)
  Receive Date: 20230403
  Receipt Date: 20230407
  Transmission Date: 20230722
  Serious: Yes (Hospitalization)
  Sender: FDA-Public Use
  Company Number: KR-002147023-NVSC2023KR076775

PATIENT
  Age: 63 Year
  Sex: Female

DRUGS (4)
  1. TISLELIZUMAB [Suspect]
     Active Substance: TISLELIZUMAB
     Indication: Diffuse large B-cell lymphoma
     Dosage: 200 MG, Q3W
     Route: 042
     Dates: start: 20221018, end: 20230228
  2. TISLELIZUMAB [Suspect]
     Active Substance: TISLELIZUMAB
     Dosage: 200 MG, Q3W
     Route: 042
     Dates: start: 20230404
  3. PEMETREXED [Suspect]
     Active Substance: PEMETREXED
     Indication: Diffuse large B-cell lymphoma
     Dosage: 800 MG, Q3W
     Route: 042
     Dates: start: 20221018, end: 20230228
  4. PEMETREXED [Suspect]
     Active Substance: PEMETREXED
     Dosage: 800 MG, Q3W
     Route: 042
     Dates: start: 20230404

REACTIONS (1)
  - Rash [Recovered/Resolved]

NARRATIVE: CASE EVENT DATE: 20230313
